FAERS Safety Report 13057557 (Version 1)
Quarter: 2016Q4

REPORT INFORMATION
  Report Type: Spontaneous
  Country: US (occurrence: US)
  Receive Date: 20161223
  Receipt Date: 20161223
  Transmission Date: 20170207
  Serious: No
  Sender: FDA-Public Use
  Company Number: US-ASTRAZENECA-2014SE10241

PATIENT
  Age: 705 Month
  Sex: Male
  Weight: 113.4 kg

DRUGS (8)
  1. AMOXICILLIN. [Concomitant]
     Active Substance: AMOXICILLIN
     Indication: TOOTH EXTRACTION
     Dates: start: 201611
  2. LOSARTAN. [Concomitant]
     Active Substance: LOSARTAN
     Indication: RENAL DISORDER
  3. LISINOPRIL. [Suspect]
     Active Substance: LISINOPRIL
     Indication: RENAL IMPAIRMENT
     Dosage: DAILY
     Route: 048
     Dates: start: 2014, end: 201610
  4. AMBIEN [Concomitant]
     Active Substance: ZOLPIDEM TARTRATE
     Dosage: EVERY DAY
  5. TYLENOL [Concomitant]
     Active Substance: ACETAMINOPHEN
  6. IBUPROFEN. [Concomitant]
     Active Substance: IBUPROFEN
  7. GABAPENTIN. [Concomitant]
     Active Substance: GABAPENTIN
     Indication: NERVOUS SYSTEM DISORDER
     Dates: start: 2015
  8. BYDUREON [Suspect]
     Active Substance: EXENATIDE
     Indication: TYPE 2 DIABETES MELLITUS
     Route: 058
     Dates: start: 20140115

REACTIONS (6)
  - Headache [Recovering/Resolving]
  - Dehydration [Unknown]
  - Muscle spasms [Not Recovered/Not Resolved]
  - Cough [Unknown]
  - Injection site extravasation [Unknown]
  - Weight decreased [Unknown]

NARRATIVE: CASE EVENT DATE: 201401
